FAERS Safety Report 7465783-5 (Version None)
Quarter: 2011Q2

REPORT INFORMATION
  Report Type: 
  Country: None (occurrence: None)
  Receive Date: 20110509
  Receipt Date: 20101111
  Transmission Date: 20111010
  Serious: No
  Sender: FDA-Public Use
  Company Number: US-SANOFI-AVENTIS-2010SA069362

PATIENT
  Age: 43 Year
  Sex: Male

DRUGS (6)
  1. LANTUS [Concomitant]
     Dates: start: 20100101, end: 20100101
  2. APIDRA [Suspect]
     Dosage: 30 UNITS BASAL/BOLUS ALL DAY VIA PUMP
     Route: 058
     Dates: start: 20100501
  3. HUMALOG [Concomitant]
     Dates: start: 20100101, end: 20100101
  4. APIDRA [Suspect]
     Dosage: 30 UNITS BASAL/BOLUS ALL DAY VIA PUMP
     Route: 058
     Dates: start: 20100101, end: 20101001
  5. HUMALOG [Concomitant]
     Dates: end: 20100501
  6. HUMALOG [Concomitant]
     Dates: start: 20100101

REACTIONS (1)
  - SUPRAVENTRICULAR EXTRASYSTOLES [None]
